FAERS Safety Report 4796124-X (Version None)
Quarter: 2005Q4

REPORT INFORMATION
  Report Type: 
  Country: None (occurrence: None)
  Receive Date: 20051007
  Receipt Date: 20050930
  Transmission Date: 20060501
  Serious: Yes (Other)
  Sender: FDA-Public Use
  Company Number: USA-2003-0005353

PATIENT
  Age: 50 Year
  Sex: Male
  Weight: 77.1 kg

DRUGS (13)
  1. OXYCONTIN [Suspect]
     Indication: PAIN
     Dosage: 80 MG, SEE TEXT
     Dates: start: 19991101
  2. OXYCONTIN [Suspect]
     Indication: PAIN
     Dosage: 80 MG, SEE TEXT
     Dates: start: 20030401
  3. XANAX [Suspect]
     Dosage: 2 MG, NOCTE
  4. DETROSTAT (DEXANETANUBE SYKFATE) [Suspect]
     Dosage: 30 MG, QID
  5. DURAGESIC-100 [Suspect]
     Dosage: 100 MCG/HR, Q1H, TOPICAL
     Route: 061
  6. DESOXYN [Suspect]
     Dosage: 5 MG
  7. ALZAM [Suspect]
  8. DEMORAL [Suspect]
  9. METHADONE HCL [Suspect]
     Dosage: 185 MG,
  10. PROMETHEGAN [Concomitant]
  11. NEXIUM [Concomitant]
  12. LAMISIL [Concomitant]
  13. VIOXX [Concomitant]

REACTIONS (6)
  - AMNESIA [None]
  - DEPENDENCE [None]
  - DISORIENTATION [None]
  - LEGAL PROBLEM [None]
  - LOSS OF CONSCIOUSNESS [None]
  - ROAD TRAFFIC ACCIDENT [None]
